FAERS Safety Report 16278243 (Version 1)
Quarter: 2019Q2

REPORT INFORMATION
  Report Type: Spontaneous
  Country: GB (occurrence: GB)
  Receive Date: 20190506
  Receipt Date: 20190506
  Transmission Date: 20190711
  Serious: Yes (Hospitalization, Disabling)
  Sender: FDA-Public Use
  Company Number: GB-MYLANLABS-2019M1042949

PATIENT
  Age: 57 Year
  Sex: Male
  Weight: 84.81 kg

DRUGS (3)
  1. TERBINAFINE. [Suspect]
     Active Substance: TERBINAFINE
     Indication: ONYCHOMYCOSIS
     Dosage: 1 DOSAGE FORM, QD
     Route: 048
     Dates: start: 20180823, end: 20180925
  2. RAMIPRIL. [Concomitant]
     Active Substance: RAMIPRIL
     Dosage: DOSE UNCHANGED SINCE FEB 2018
  3. AMLODIPINE [Concomitant]
     Active Substance: AMLODIPINE BESYLATE
     Dosage: DOSE UNCHANGED SINCE FEB 2018

REACTIONS (2)
  - Guillain-Barre syndrome [Not Recovered/Not Resolved]
  - Pain [Unknown]

NARRATIVE: CASE EVENT DATE: 20180925
